FAERS Safety Report 21763536 (Version 1)
Quarter: 2022Q4

REPORT INFORMATION
  Report Type: Spontaneous
  Country: IN (occurrence: IN)
  Receive Date: 20221221
  Receipt Date: 20221221
  Transmission Date: 20230112
  Serious: Yes (Hospitalization)
  Sender: FDA-Public Use
  Company Number: IN-002147023-NVSC2022IN294767

PATIENT
  Age: 21 Year
  Sex: Female

DRUGS (6)
  1. CLOFAZIMINE [Suspect]
     Active Substance: CLOFAZIMINE
     Indication: Borderline leprosy
     Dosage: UNK (STANDARD MULTI-DRUG THERAPY)
     Route: 065
  2. CLOFAZIMINE [Suspect]
     Active Substance: CLOFAZIMINE
     Indication: Tuberculoid leprosy
  3. DAPSONE [Suspect]
     Active Substance: DAPSONE
     Indication: Borderline leprosy
     Dosage: UNK (STANDARD MULTI-DRUG THERAPY)
     Route: 065
  4. DAPSONE [Suspect]
     Active Substance: DAPSONE
     Indication: Tuberculoid leprosy
  5. RIFAMPIN [Concomitant]
     Active Substance: RIFAMPIN
     Indication: Borderline leprosy
     Dosage: UNK (STANDARD MULTI-DRUG THERAPY)
     Route: 065
  6. RIFAMPIN [Concomitant]
     Active Substance: RIFAMPIN
     Indication: Tuberculoid leprosy

REACTIONS (1)
  - Methaemoglobinaemia [Unknown]
